FAERS Safety Report 23450593 (Version 1)
Quarter: 2024Q1

REPORT INFORMATION
  Report Type: Spontaneous
  Country: US (occurrence: None)
  Receive Date: 20240126
  Receipt Date: 20240126
  Transmission Date: 20240409
  Serious: Yes (Hospitalization)
  Sender: FDA-Public Use
  Company Number: None

PATIENT
  Age: 72 Year
  Sex: Female

DRUGS (14)
  1. AMBRISENTAN [Suspect]
     Active Substance: AMBRISENTAN
     Indication: Pulmonary arterial hypertension
     Dosage: FREQUENCY : DAILY;?
     Route: 048
     Dates: start: 20230201
  2. SELEXIPAG [Concomitant]
     Active Substance: SELEXIPAG
  3. MIDODRINE [Concomitant]
  4. CYCLOPHOSPHAMIDE [Concomitant]
     Active Substance: CYCLOPHOSPHAMIDE
  5. TORSEMIDE [Concomitant]
     Active Substance: TORSEMIDE
  6. ONDANSETRON [Concomitant]
  7. dexamethesone [Concomitant]
  8. MONTELUKAST [Concomitant]
     Active Substance: MONTELUKAST SODIUM
  9. ACETAMINOPHEN [Concomitant]
  10. FAMOTIDINE [Concomitant]
     Active Substance: FAMOTIDINE
  11. PROCHLORPERAZINE [Concomitant]
     Active Substance: PROCHLORPERAZINE
  12. ACYCLOVIR [Concomitant]
     Active Substance: ACYCLOVIR
  13. CLOTRIMAZOLE [Concomitant]
  14. TRETINOIN [Concomitant]

REACTIONS (3)
  - Hypoxia [None]
  - Hypotension [None]
  - Anaemia [None]

NARRATIVE: CASE EVENT DATE: 20240116
